FAERS Safety Report 4357349-0 (Version None)
Quarter: 2004Q2

REPORT INFORMATION
  Report Type: 
  Country: None (occurrence: None)
  Receive Date: 20040511
  Receipt Date: 20040511
  Transmission Date: 20050107
  Serious: Yes (Hospitalization, Other)
  Sender: FDA-Public Use
  Company Number: None

PATIENT
  Age: 79 Year
  Sex: Male
  Weight: 61.7 kg

DRUGS (1)
  1. ASPIRIN [Suspect]
     Indication: CEREBROVASCULAR ACCIDENT PROPHYLAXIS
     Dosage: 325 MG PO BID
     Route: 048

REACTIONS (8)
  - ABDOMINAL MASS [None]
  - DUODENAL ULCER [None]
  - HAEMATEMESIS [None]
  - HAEMATOCHEZIA [None]
  - HELICOBACTER PYLORI IDENTIFICATION TEST POSITIVE [None]
  - PULSE PRESSURE INCREASED [None]
  - THROMBOSIS [None]
  - UPPER GASTROINTESTINAL HAEMORRHAGE [None]
